FAERS Safety Report 8794391 (Version 2)
Quarter: 2012Q4

REPORT INFORMATION
  Report Type: 
  Country: JP (occurrence: JP)
  Receive Date: 20120917
  Receipt Date: 20121022
  Transmission Date: 20130627
  Serious: Yes (Other)
  Sender: FDA-Public Use
  Company Number: PHHY2012JP073593

PATIENT
  Age: 28 Year
  Sex: Female

DRUGS (3)
  1. NEORAL [Suspect]
     Indication: PSORIASIS
     Dosage: 100 mg, daily
     Route: 048
     Dates: start: 20120813, end: 20120823
  2. TIGASON [Concomitant]
     Indication: PSORIASIS
     Route: 048
     Dates: end: 201207
  3. TIGASON [Concomitant]
     Dates: start: 20120824

REACTIONS (1)
  - Amylase increased [Recovered/Resolved]
